FAERS Safety Report 17527396 (Version 1)
Quarter: 2020Q1

REPORT INFORMATION
  Report Type: Spontaneous
  Country: CN (occurrence: CN)
  Receive Date: 20200310
  Receipt Date: 20200310
  Transmission Date: 20200409
  Serious: Yes (Other)
  Sender: FDA-Public Use
  Company Number: CN-BAXTER-2020BAX005148

PATIENT
  Age: 54 Year
  Sex: Female
  Weight: 60 kg

DRUGS (9)
  1. 0.9% SODIUM CHLORIDE INJECTION [Suspect]
     Active Substance: SODIUM CHLORIDE
     Indication: MEDICATION DILUTION
     Dosage: CYCLOPHOSPHAMIDE 900 MG+ 0.9% SODIUM CHLORIDE 100 ML, DAY 1
     Route: 041
     Dates: start: 20200131, end: 20200131
  2. RECOMBINANT HUMAN GRANULOCYTE STIMULATING FACTOR [Concomitant]
     Indication: PROPHYLAXIS
     Route: 058
  3. 5% GLUCOSE  INJECTION [Suspect]
     Active Substance: DEXTROSE
     Dosage: DOSE RE-INTRODUCED, PIRARUBICIN HYDROCHLORIDE + 5% GLUCOSE
     Route: 041
  4. PIRARUBICIN HYDROCHLORIDE [Suspect]
     Active Substance: PIRARUBICIN HYDROCHLORIDE
     Dosage: DOSE RE-INTRODUCED, PIRARUBICIN HYDROCHLORIDE + 5% GLUCOSE
     Route: 041
  5. PIRARUBICIN HYDROCHLORIDE [Suspect]
     Active Substance: PIRARUBICIN HYDROCHLORIDE
     Indication: BREAST CANCER FEMALE
     Dosage: PIRARUBICIN HYDROCHLORIDE 50 MG+ 5% GLUCOSE 100 ML, DAY 1
     Route: 041
     Dates: start: 20200131, end: 20200131
  6. ENDOXAN [Suspect]
     Active Substance: CYCLOPHOSPHAMIDE
     Indication: BREAST CANCER FEMALE
     Dosage: CYCLOPHOSPHAMIDE 900 MG+ 0.9% SODIUM CHLORIDE 100 ML, DAY 1
     Route: 041
     Dates: start: 20200131, end: 20200131
  7. 0.9% SODIUM CHLORIDE INJECTION [Suspect]
     Active Substance: SODIUM CHLORIDE
     Dosage: DOSE RE-INTRODUCED, CYCLOPHOSPHAMIDE + 0.9% SODIUM CHLORIDE
     Route: 041
  8. ENDOXAN [Suspect]
     Active Substance: CYCLOPHOSPHAMIDE
     Dosage: DOSE RE-INTRODUCED, CYCLOPHOSPHAMIDE + 0.9% SODIUM CHLORIDE
     Route: 041
  9. 5% GLUCOSE  INJECTION [Suspect]
     Active Substance: DEXTROSE
     Indication: MEDICATION DILUTION
     Dosage: PIRARUBICIN HYDROCHLORIDE 50 MG+ 5% GLUCOSE 100 ML. DAY 1
     Route: 041
     Dates: start: 20200131, end: 20200131

REACTIONS (2)
  - Leukostasis syndrome [Unknown]
  - White blood cell count decreased [Recovered/Resolved]

NARRATIVE: CASE EVENT DATE: 20200213
